FAERS Safety Report 11746253 (Version 1)
Quarter: 2015Q4

REPORT INFORMATION
  Report Type: Spontaneous
  Country: US (occurrence: US)
  Receive Date: 20151117
  Receipt Date: 20151117
  Transmission Date: 20160304
  Serious: Yes (Hospitalization)
  Sender: FDA-Public Use
  Company Number: US-JNJFOC-20151116154

PATIENT
  Sex: Female
  Weight: 61.24 kg

DRUGS (2)
  1. STELARA [Suspect]
     Active Substance: USTEKINUMAB
     Indication: PSORIASIS
     Dosage: EVERY 5-6 WEEKS
     Route: 058
     Dates: start: 201501, end: 2015
  2. STELARA [Suspect]
     Active Substance: USTEKINUMAB
     Indication: CROHN^S DISEASE
     Dosage: EVERY 5-6 WEEKS
     Route: 058
     Dates: start: 201501, end: 2015

REACTIONS (4)
  - Off label use [Unknown]
  - Gastrointestinal disorder [Unknown]
  - Product use issue [Unknown]
  - Drug ineffective [Unknown]

NARRATIVE: CASE EVENT DATE: 2015
